FAERS Safety Report 8897024 (Version 2)
Quarter: 2013Q1

REPORT INFORMATION
  Report Type: Spontaneous
  Country: JP (occurrence: None)
  Receive Date: 20121102
  Receipt Date: 20121113
  Transmission Date: 20140127
  Serious: Yes (Other)
  Sender: FDA-Public Use
  Company Number: VAL_00948_2012

PATIENT
  Age: 48 Year
  Sex: Male
  Weight: 81 kg

DRUGS (6)
  1. METOPROLOL [Suspect]
     Indication: PRODUCT USED FOR UNKNOWN INDICATION
     Route: 048
  2. ALLOPURINOL [Concomitant]
     Dosage: (DF ORAL)
     Route: 048
  3. LOXOPROFEN (LOXOPROFEN) [Concomitant]
     Dosage: (DF ORAL)
     Route: 048
  4. CEFTRIAXONE (CEFTRIAXONE) [Concomitant]
     Route: 041
  5. NICARDIPINE HYDROCHLORIDE [Concomitant]
  6. CEFCAPENE PIVOXIL HYDROCHLORIDE [Concomitant]

REACTIONS (3)
  - Stevens-Johnson syndrome [None]
  - Osteonecrosis [None]
  - Aortic dissection [None]
